FAERS Safety Report 8777081 (Version 3)
Quarter: 2012Q4

REPORT INFORMATION
  Report Type: 
  Country: US (occurrence: US)
  Receive Date: 20120911
  Receipt Date: 20121119
  Transmission Date: 20130627
  Serious: Yes (Death, Life-Threatening, Hospitalization, Disabling, Other)
  Sender: FDA-Public Use
  Company Number: US-ACTELION-A-NJ2012-70783

PATIENT
  Age: 59 Year
  Sex: Male

DRUGS (16)
  1. TRACLEER [Suspect]
     Indication: PULMONARY ARTERIAL HYPERTENSION
     Dosage: 125 mg, bid
     Route: 048
     Dates: start: 200906, end: 20121004
  2. TRACLEER [Suspect]
     Dosage: 62.5 mg, bid
     Route: 048
     Dates: start: 200905, end: 200906
  3. KLOR-CON [Concomitant]
  4. FUROSEMIDE [Concomitant]
  5. DOXEPIN [Concomitant]
  6. LEVOTHYROXINE [Concomitant]
  7. VALISONE [Concomitant]
  8. CIPROFLOXACIN [Concomitant]
  9. DOCUSATE [Concomitant]
  10. FLAGYL [Concomitant]
  11. PROTONIX [Concomitant]
  12. FERROUS SULFATE [Concomitant]
  13. ASPIRIN [Concomitant]
  14. CALCITRIOL [Concomitant]
  15. ALLOPURINOL [Concomitant]
  16. LOMOTIL [Concomitant]

REACTIONS (16)
  - Fallot^s tetralogy [Fatal]
  - Cholangitis sclerosing [Fatal]
  - Cholelithiasis [Recovering/Resolving]
  - Asthenia [Recovering/Resolving]
  - Dysphagia [Recovering/Resolving]
  - Fatigue [Recovering/Resolving]
  - Constipation [Recovering/Resolving]
  - Pyrexia [Recovering/Resolving]
  - Chills [Recovering/Resolving]
  - Dyspepsia [Recovering/Resolving]
  - Blood alkaline phosphatase increased [Recovering/Resolving]
  - Blood bilirubin increased [Recovering/Resolving]
  - Dehydration [Recovering/Resolving]
  - Gout [Unknown]
  - Blood creatinine increased [Unknown]
  - Dyspnoea [Unknown]
